FAERS Safety Report 8607709-4 (Version None)
Quarter: 2012Q3

REPORT INFORMATION
  Report Type: 
  Country: None (occurrence: None)
  Receive Date: 20120821
  Receipt Date: 20120816
  Transmission Date: 20120928
  Serious: No
  Sender: FDA-Public Use
  Company Number: US-TEVA-354303USA

PATIENT
  Sex: Female
  Weight: 68.554 kg

DRUGS (4)
  1. HUMULIN R [Concomitant]
     Indication: DIABETES MELLITUS
  2. GLUCOPHAGE [Concomitant]
  3. PROAIR HFA [Suspect]
     Indication: RESPIRATORY DISORDER
     Dosage: 360 MCG DAILY
     Dates: start: 20120815
  4. BACLOFEN [Concomitant]
     Indication: MYALGIA

REACTIONS (1)
  - BLOOD GLUCOSE INCREASED [None]
